FAERS Safety Report 9105693 (Version 4)
Quarter: 2014Q2

REPORT INFORMATION
  Report Type: Spontaneous
  Country: US (occurrence: US)
  Receive Date: 20130221
  Receipt Date: 20140428
  Transmission Date: 20141212
  Serious: Yes (Disabling, Other)
  Sender: FDA-Public Use
  Company Number: US-GLAXOSMITHKLINE-A1013092A

PATIENT
  Age: 69 Year
  Sex: Male
  Weight: 51 kg

DRUGS (13)
  1. FLOLAN [Suspect]
     Indication: PULMONARY ARTERIAL HYPERTENSION
     Dosage: 63NGM SEE DOSAGE TEXT
     Route: 042
     Dates: start: 19960313
  2. BUMETANIDE [Concomitant]
  3. BIMATOPROST [Concomitant]
  4. TRAZODONE [Concomitant]
  5. MAGNESIUM OXIDE [Concomitant]
  6. CITALOPRAM [Concomitant]
  7. DOXEPIN [Concomitant]
  8. ALBUTEROL [Concomitant]
  9. DIGOXIN [Concomitant]
  10. BRINZOLAMIDE [Concomitant]
  11. COMBIGAN [Concomitant]
  12. ACETAMINOPHEN [Concomitant]
  13. MULTIVITAMINS [Concomitant]

REACTIONS (12)
  - Glaucoma [Unknown]
  - Blindness [Not Recovered/Not Resolved]
  - Hypersensitivity vasculitis [Unknown]
  - Pulmonary haemorrhage [Recovered/Resolved]
  - Haemoptysis [Recovered/Resolved]
  - Aneurysm [Recovered/Resolved]
  - Rash [Unknown]
  - Thrombocytopenia [Unknown]
  - Depressed mood [Unknown]
  - Medical device complication [Unknown]
  - Device alarm issue [Unknown]
  - Weight decreased [Unknown]
